FAERS Safety Report 5808546-6 (Version None)
Quarter: 2008Q3

REPORT INFORMATION
  Report Type: 
  Country: None (occurrence: None)
  Receive Date: 20080714
  Receipt Date: 20080710
  Transmission Date: 20090109
  Serious: Yes (Other)
  Sender: FDA-Public Use
  Company Number: GB-RB-002413-08

PATIENT
  Sex: Male

DRUGS (1)
  1. SUBOXONE [Suspect]
     Indication: DRUG WITHDRAWAL SYNDROME
     Dosage: UNKNOWN DOSING INFORMATION.
     Route: 045

REACTIONS (1)
  - SUBSTANCE ABUSE [None]
